FAERS Safety Report 17907921 (Version 1)
Quarter: 2020Q2

REPORT INFORMATION
  Report Type: Spontaneous
  Country: RU (occurrence: RU)
  Receive Date: 20200617
  Receipt Date: 20200617
  Transmission Date: 20200714
  Serious: Yes (Death, Other)
  Sender: FDA-Public Use
  Company Number: RU-ASTRAZENECA-2020SE76392

PATIENT
  Sex: Female

DRUGS (3)
  1. SORBIFER DURULES [Concomitant]
     Active Substance: FERROUS SULFATE
  2. CARDIOMAGNYL [Concomitant]
     Active Substance: ASPIRIN\MAGNESIUM HYDROXIDE
  3. LYNPARZA [Suspect]
     Active Substance: OLAPARIB
     Indication: OVARIAN CANCER
     Route: 048
     Dates: start: 20191227

REACTIONS (2)
  - Malignant neoplasm progression [Unknown]
  - COVID-19 pneumonia [Fatal]
